FAERS Safety Report 9603862 (Version 1)
Quarter: 2013Q4

REPORT INFORMATION
  Report Type: Spontaneous
  Country: GB (occurrence: GB)
  Receive Date: 20131008
  Receipt Date: 20131008
  Transmission Date: 20140711
  Serious: Yes (Disabling)
  Sender: FDA-Public Use
  Company Number: GB-009507513-1310GBR002687

PATIENT
  Age: 44 Year
  Sex: Female
  Weight: 78.92 kg

DRUGS (13)
  1. MIRTAZAPINE [Suspect]
     Indication: ANTIDEPRESSANT DRUG CLEARANCE DECREASED
     Dosage: 60 MG, QD
     Route: 048
     Dates: start: 20120901
  2. MIRTAZAPINE [Suspect]
     Indication: CHRONIC FATIGUE SYNDROME
     Dosage: 60 MG, QD
     Route: 048
  3. MIRTAZAPINE [Suspect]
     Dosage: 15 MG, QD
     Route: 048
  4. MIRTAZAPINE [Suspect]
     Dosage: 30 MG, QD
     Route: 048
  5. MIRTAZAPINE [Suspect]
     Dosage: 45 MG, QD
     Route: 048
     Dates: end: 20130921
  6. MIRTAZAPINE [Suspect]
     Dosage: 15 MG, QD
     Route: 048
     Dates: start: 201309, end: 201309
  7. MIRTAZAPINE [Suspect]
     Dosage: 30 MG, QD
     Route: 048
     Dates: start: 201309, end: 201309
  8. MIRTAZAPINE [Suspect]
     Dosage: 45 MG, QD
     Route: 048
     Dates: start: 201309, end: 201309
  9. CELLUVISC [Concomitant]
  10. NAPROXEN [Concomitant]
  11. OMEPRAZOLE [Concomitant]
  12. ACETAMINOPHEN [Concomitant]
  13. TRAMADOL HYDROCHLORIDE [Concomitant]

REACTIONS (8)
  - Hyperhidrosis [Recovered/Resolved]
  - Influenza like illness [Recovered/Resolved]
  - Cold sweat [Recovered/Resolved]
  - Fatigue [Recovered/Resolved]
  - Headache [Recovered/Resolved]
  - Insomnia [Not Recovered/Not Resolved]
  - Mood swings [Recovered/Resolved]
  - Nausea [Recovered/Resolved]
